FAERS Safety Report 4967953-4 (Version None)
Quarter: 2006Q2

REPORT INFORMATION
  Report Type: 
  Country: None (occurrence: None)
  Receive Date: 20060410
  Receipt Date: 20060322
  Transmission Date: 20061013
  Serious: Yes (Hospitalization)
  Sender: FDA-Public Use
  Company Number: PHBS2006JP04476

PATIENT
  Age: 80 Year
  Sex: Female
  Weight: 44 kg

DRUGS (4)
  1. TEGRETOL [Suspect]
     Indication: TRIGEMINAL NEURALGIA
     Dosage: 600 MG/DAY
     Route: 048
  2. TEGRETOL [Suspect]
     Dosage: 600 MG/DAY
     Route: 048
  3. CAPTOPRIL [Concomitant]
     Indication: HYPERTENSION
     Dosage: 37.5 MG/DAY
     Route: 048
  4. CAPTOPRIL [Concomitant]
     Route: 048

REACTIONS (14)
  - ABDOMINAL PAIN UPPER [None]
  - ACUTE ABDOMEN [None]
  - ANAEMIA [None]
  - ATRIAL FIBRILLATION [None]
  - BRADYCARDIA [None]
  - DIZZINESS [None]
  - EXTRASYSTOLES [None]
  - GASTRITIS [None]
  - HEART RATE INCREASED [None]
  - LOSS OF CONSCIOUSNESS [None]
  - NODAL RHYTHM [None]
  - SINOATRIAL BLOCK [None]
  - VENTRICULAR HYPERTROPHY [None]
  - VOMITING [None]
